FAERS Safety Report 18191526 (Version 1)
Quarter: 2020Q3

REPORT INFORMATION
  Report Type: Other
  Country: CA (occurrence: CA)
  Receive Date: 20200824
  Receipt Date: 20200824
  Transmission Date: 20201103
  Serious: Yes (Hospitalization)
  Sender: FDA-Public Use
  Company Number: CA-CELLTRION INC.-2020CA025360

PATIENT

DRUGS (8)
  1. TRASTUZUMAB (UNKNOWN) [Suspect]
     Active Substance: TRASTUZUMAB
     Indication: HER2 POSITIVE BREAST CANCER
     Dosage: 6.0 MG/KG 1 EVERY 3 WEEKS
     Route: 042
  2. CARBOPLATIN. [Suspect]
     Active Substance: CARBOPLATIN
     Indication: HER2 POSITIVE BREAST CANCER
     Dosage: 1 EVERY 3 WEEKS
     Route: 042
  3. DOCETAXEL. [Suspect]
     Active Substance: DOCETAXEL
     Indication: HER2 POSITIVE BREAST CANCER
     Dosage: 75.0 MG/M2, 1 EVERY 3 WEEKS
     Route: 042
  4. BROMPHENIRAMINE MALEATE;PHENYLEPHRINE HYDROCHLORIDE;PHENYLPROPANOLAMIN [Concomitant]
  5. LOPERAMIDE [Concomitant]
     Active Substance: LOPERAMIDE
  6. AVAPRO [Concomitant]
     Active Substance: IRBESARTAN
  7. GRAVOL [Concomitant]
     Active Substance: DIMENHYDRINATE
  8. BEVACIZUMAB. [Suspect]
     Active Substance: BEVACIZUMAB
     Indication: HER2 POSITIVE BREAST CANCER
     Dosage: 15.0 MG/KG 1 EVERY 3 WEEKS
     Route: 042

REACTIONS (7)
  - Acute kidney injury [Recovered/Resolved]
  - Diarrhoea [Recovered/Resolved]
  - Hypovolaemia [Recovered/Resolved]
  - Mucosal inflammation [Recovered/Resolved]
  - Dehydration [Recovered/Resolved]
  - Clostridium difficile infection [Recovered/Resolved]
  - Palmar-plantar erythrodysaesthesia syndrome [Recovered/Resolved]
